FAERS Safety Report 18542347 (Version 1)
Quarter: 2020Q4

REPORT INFORMATION
  Report Type: Spontaneous
  Country: US (occurrence: US)
  Receive Date: 20201124
  Receipt Date: 20201124
  Transmission Date: 20210114
  Serious: Yes (Other)
  Sender: FDA-Public Use
  Company Number: US-JNJFOC-20201135898

PATIENT
  Sex: Female

DRUGS (8)
  1. ESKETAMINE [Suspect]
     Active Substance: ESKETAMINE
     Dates: start: 20191127, end: 20191127
  2. ESKETAMINE [Suspect]
     Active Substance: ESKETAMINE
     Dates: start: 20191203, end: 20191203
  3. ESKETAMINE [Suspect]
     Active Substance: ESKETAMINE
     Dosage: 84MG, 9 TOTAL DOSES
     Dates: start: 20200708, end: 20201022
  4. ESKETAMINE [Suspect]
     Active Substance: ESKETAMINE
     Indication: DEPRESSION
     Dosage: 56MG, 7 TOTAL DOSES
     Dates: start: 20191104, end: 20191121
  5. ESKETAMINE [Suspect]
     Active Substance: ESKETAMINE
     Dosage: 84MG, 13 TOTAL DOSES
     Dates: start: 20191218, end: 20200625
  6. ESKETAMINE [Suspect]
     Active Substance: ESKETAMINE
     Dates: start: 20191210, end: 20191210
  7. ESKETAMINE [Suspect]
     Active Substance: ESKETAMINE
     Dates: start: 20200701, end: 20200701
  8. ESKETAMINE [Suspect]
     Active Substance: ESKETAMINE
     Dates: start: 20191126, end: 20191126

REACTIONS (1)
  - Suicidal ideation [Unknown]
